FAERS Safety Report 9083628 (Version 1)
Quarter: 2013Q1

REPORT INFORMATION
  Report Type: Report from Study
  Country: US (occurrence: US)
  Receive Date: 20130129
  Receipt Date: 20130129
  Transmission Date: 20140127
  Serious: No
  Sender: FDA-Public Use
  Company Number: US-ABBOTT-12P-163-0946844-00

PATIENT
  Age: 66 None
  Sex: Male
  Weight: 86.26 kg

DRUGS (9)
  1. HUMIRA 40 MG/0.8 ML PEN [Suspect]
     Indication: RHEUMATOID ARTHRITIS
     Dates: start: 2008
  2. ARAVA [Concomitant]
     Indication: RHEUMATOID ARTHRITIS
  3. HYZAAR [Concomitant]
     Indication: HYPERTENSION
  4. TOPROL [Concomitant]
     Indication: HYPERTENSION
  5. CRESTOR [Concomitant]
     Indication: BLOOD CHOLESTEROL INCREASED
  6. PROTONIX [Concomitant]
     Indication: GASTROOESOPHAGEAL REFLUX DISEASE
  7. ECOTRIN [Concomitant]
     Indication: PRODUCT USED FOR UNKNOWN INDICATION
  8. FOLIC ACID [Concomitant]
     Indication: PRODUCT USED FOR UNKNOWN INDICATION
  9. FLOMAX [Concomitant]
     Indication: PROSTATOMEGALY

REACTIONS (9)
  - Incorrect dose administered [Not Recovered/Not Resolved]
  - Injection site haemorrhage [Recovered/Resolved]
  - Device malfunction [Not Recovered/Not Resolved]
  - Injection site haemorrhage [Recovered/Resolved]
  - Rheumatoid arthritis [Recovered/Resolved]
  - Feeling abnormal [Recovered/Resolved]
  - Drug effect decreased [Not Recovered/Not Resolved]
  - Incorrect dose administered [Not Recovered/Not Resolved]
  - Device malfunction [Not Recovered/Not Resolved]
